FAERS Safety Report 4709520-3 (Version None)
Quarter: 2005Q3

REPORT INFORMATION
  Report Type: 
  Country: None (occurrence: None)
  Receive Date: 20050707
  Receipt Date: 20050624
  Transmission Date: 20060218
  Serious: No
  Sender: FDA-Public Use
  Company Number: 9817704

PATIENT
  Age: 75 Year
  Sex: Male
  Weight: 97.0698 kg

DRUGS (4)
  1. SILDENAFIL CITRATE [Suspect]
     Indication: ERECTILE DYSFUNCTION
     Dosage: 50 MG (PRN) ORAL
     Route: 048
     Dates: start: 19980501, end: 19980701
  2. DILACOR (DILTIAZEM HYDROCHLORIDE) [Concomitant]
  3. LEVOTHYROID (LEVOTHYROXINE) [Concomitant]
  4. TYLENOL [Concomitant]

REACTIONS (5)
  - BLOOD PRESSURE DECREASED [None]
  - HEADACHE [None]
  - LOSS OF CONSCIOUSNESS [None]
  - VITREOUS DETACHMENT [None]
  - WRONG TECHNIQUE IN DRUG USAGE PROCESS [None]
